FAERS Safety Report 5411394-2 (Version None)
Quarter: 2007Q3

REPORT INFORMATION
  Report Type: 
  Country: None (occurrence: None)
  Receive Date: 20070810
  Receipt Date: 20070709
  Transmission Date: 20080115
  Serious: Yes (Hospitalization)
  Sender: FDA-Public Use
  Company Number: US-ASTRAZENECA-2006UW22472

PATIENT
  Age: 23989 Day
  Sex: Female
  Weight: 75.9 kg

DRUGS (7)
  1. ROSUVASTATIN [Suspect]
     Indication: DYSLIPIDAEMIA
     Route: 048
     Dates: start: 20060601
  2. ABT-335 [Suspect]
     Indication: DYSLIPIDAEMIA
     Dosage: 1 IN 1 D
     Route: 048
     Dates: start: 20060825, end: 20060912
  3. VYTORIN [Suspect]
     Indication: DYSLIPIDAEMIA
     Dosage: 10/20MG (1 IN 1 D)
     Dates: start: 20050805, end: 20060405
  4. METFORMIN HCL [Concomitant]
     Indication: DIABETES MELLITUS
     Dosage: 1 IN 1 D
     Dates: start: 20050101
  5. ACETYLSALICYLIC ACID SRT [Concomitant]
     Indication: PROPHYLAXIS
     Dosage: 1 IN 1 D
  6. PANTOPRAZOLE SODIUM [Concomitant]
     Indication: GASTROOESOPHAGEAL REFLUX DISEASE
     Dosage: 1 IN 1 D
  7. WARFARIN SODIUM [Concomitant]
     Route: 048

REACTIONS (1)
  - THROMBOPHLEBITIS SUPERFICIAL [None]
